FAERS Safety Report 10932901 (Version 3)
Quarter: 2015Q2

REPORT INFORMATION
  Report Type: Spontaneous
  Country: DE (occurrence: DE)
  Receive Date: 20150320
  Receipt Date: 20150416
  Transmission Date: 20150821
  Serious: Yes (Death, Hospitalization, Other)
  Sender: FDA-Public Use
  Company Number: DE-BRISTOL-MYERS SQUIBB COMPANY-BMS-2015-012876

PATIENT
  Age: 76 Year
  Sex: Male

DRUGS (1)
  1. YERVOY [Suspect]
     Active Substance: IPILIMUMAB
     Indication: METASTATIC MALIGNANT MELANOMA
     Dosage: 3 MG/KG, UNK
     Route: 065

REACTIONS (4)
  - Haematochezia [Unknown]
  - Frequent bowel movements [Unknown]
  - Intestinal perforation [Unknown]
  - Death [Fatal]

NARRATIVE: CASE EVENT DATE: 201503
